FAERS Safety Report 6260058-4 (Version None)
Quarter: 2009Q3

REPORT INFORMATION
  Report Type: 
  Country: None (occurrence: None)
  Receive Date: 20090708
  Receipt Date: 20090630
  Transmission Date: 20100115
  Serious: Yes (Death, Life-Threatening)
  Sender: FDA-Public Use
  Company Number: JP-AVENTIS-200911648JP

PATIENT
  Age: 39 Year
  Sex: Female
  Weight: 45 kg

DRUGS (4)
  1. RILUTEK [Suspect]
     Indication: AMYOTROPHIC LATERAL SCLEROSIS
     Route: 048
     Dates: start: 20070501, end: 20090608
  2. METHYCOBAL                         /00056201/ [Concomitant]
     Route: 048
     Dates: end: 20090608
  3. MAGMITT [Concomitant]
     Indication: CONSTIPATION
     Route: 048
     Dates: end: 20090608
  4. JUVELA                             /00110503/ [Concomitant]
     Route: 048
     Dates: end: 20090608

REACTIONS (2)
  - DEPRESSED LEVEL OF CONSCIOUSNESS [None]
  - HEPATITIS FULMINANT [None]
